FAERS Safety Report 19644084 (Version 3)
Quarter: 2024Q1

REPORT INFORMATION
  Report Type: Report from Study
  Country: GB (occurrence: GB)
  Receive Date: 20210731
  Receipt Date: 20240216
  Transmission Date: 20240409
  Serious: Yes (Hospitalization, Other)
  Sender: FDA-Public Use
  Company Number: GB-NOVARTISPH-NVSC2021GB166158

PATIENT
  Sex: Male

DRUGS (2)
  1. COSENTYX [Suspect]
     Active Substance: SECUKINUMAB
     Indication: Ankylosing spondylitis
     Dosage: 150 MG, QMO (2 PRE-FILLED DISPOSABLE INJECTION)
     Route: 058
     Dates: start: 20201203
  2. METHOTREXATE [Suspect]
     Active Substance: METHOTREXATE
     Indication: Product used for unknown indication
     Dosage: UNK (MISSED 2 DOSES)
     Route: 065

REACTIONS (4)
  - Pneumonia [Unknown]
  - Lower respiratory tract infection [Recovering/Resolving]
  - COVID-19 [Recovering/Resolving]
  - Pyrexia [Unknown]
